FAERS Safety Report 22655136 (Version 1)
Quarter: 2023Q2

REPORT INFORMATION
  Report Type: Spontaneous
  Country: IN (occurrence: IN)
  Receive Date: 20230629
  Receipt Date: 20230629
  Transmission Date: 20230722
  Serious: Yes (Hospitalization)
  Sender: FDA-Public Use
  Company Number: IN-MYLANLABS-2023M1068902

PATIENT
  Age: 45 Year
  Sex: Male

DRUGS (3)
  1. TENOFOVIR DISOPROXIL [Suspect]
     Active Substance: TENOFOVIR DISOPROXIL
     Indication: Acquired immunodeficiency syndrome
     Dosage: UNK
     Route: 065
  2. EMTRICITABINE [Suspect]
     Active Substance: EMTRICITABINE
     Indication: Acquired immunodeficiency syndrome
     Dosage: UNK
     Route: 065
  3. LAMIVUDINE [Suspect]
     Active Substance: LAMIVUDINE
     Indication: Acquired immunodeficiency syndrome
     Dosage: UNK
     Route: 065

REACTIONS (1)
  - Molluscum contagiosum [Recovering/Resolving]
